FAERS Safety Report 5709185-8 (Version None)
Quarter: 2008Q2

REPORT INFORMATION
  Report Type: 
  Country: None (occurrence: None)
  Receive Date: 20080418
  Receipt Date: 20080408
  Transmission Date: 20081010
  Serious: Yes (Other)
  Sender: FDA-Public Use
  Company Number: US-ABBOTT-08P-163-0446251-00

PATIENT
  Age: 80 Year
  Sex: Female
  Weight: 63.106 kg

DRUGS (4)
  1. TRICOR [Suspect]
     Indication: BLOOD CHOLESTEROL INCREASED
     Route: 048
     Dates: start: 20040101, end: 20040101
  2. TRAMADOL HCL [Concomitant]
     Indication: ARTHRALGIA
     Route: 048
  3. FISH OIL [Concomitant]
     Indication: MINERAL SUPPLEMENTATION
     Route: 048
  4. ANCOVERT [Concomitant]
     Indication: SINUS DISORDER
     Route: 048

REACTIONS (1)
  - ANGIOEDEMA [None]
